FAERS Safety Report 26192451 (Version 1)
Quarter: 2025Q4

REPORT INFORMATION
  Report Type: Spontaneous
  Country: US (occurrence: US)
  Receive Date: 20251223
  Receipt Date: 20251223
  Transmission Date: 20260117
  Serious: No
  Sender: SANOFI AVENTIS
  Company Number: US-SA-2025SA381002

PATIENT
  Sex: Female
  Weight: 81.82 kg

DRUGS (28)
  1. DUPIXENT [Suspect]
     Active Substance: DUPILUMAB
     Indication: Asthma
     Dosage: 300 MG, QOW
     Route: 058
  2. OMEPRAZOLE [Concomitant]
     Active Substance: OMEPRAZOLE
  3. BENZONATATE [Concomitant]
     Active Substance: BENZONATATE
  4. TOPROL XL [Concomitant]
     Active Substance: METOPROLOL SUCCINATE
  5. NAPROXEN [Concomitant]
     Active Substance: NAPROXEN
  6. SINGULAIR [Concomitant]
     Active Substance: MONTELUKAST SODIUM
  7. LIPITOR [Concomitant]
     Active Substance: ATORVASTATIN CALCIUM
  8. NITROSTAT [Concomitant]
     Active Substance: NITROGLYCERIN
  9. PREDNISONE [Concomitant]
     Active Substance: PREDNISONE
  10. ISOSORBIDE DINITRATE [Concomitant]
     Active Substance: ISOSORBIDE DINITRATE
  11. TRELEGY ELLIPTA [Concomitant]
     Active Substance: FLUTICASONE FUROATE\UMECLIDINIUM BROMIDE\VILANTEROL TRIFENATATE
  12. LAMOTRIGINE [Concomitant]
     Active Substance: LAMOTRIGINE
  13. VESICARE [Concomitant]
     Active Substance: SOLIFENACIN SUCCINATE
  14. TOPAMAX [Concomitant]
     Active Substance: TOPIRAMATE
  15. PROAIR HFA [Concomitant]
     Active Substance: ALBUTEROL SULFATE
  16. ADDERALL [Concomitant]
     Active Substance: AMPHETAMINE ASPARTATE\AMPHETAMINE SULFATE\DEXTROAMPHETAMINE SACCHARATE\DEXTROAMPHETAMINE SULFATE
  17. ASPIRIN [Concomitant]
     Active Substance: ASPIRIN
  18. VOLTAREN ARTHRITIS PAIN [Concomitant]
     Active Substance: DICLOFENAC SODIUM
  19. CYMBALTA [Concomitant]
     Active Substance: DULOXETINE HYDROCHLORIDE
  20. ESTRADIOL [Concomitant]
     Active Substance: ESTRADIOL
  21. HYDROXYZINE [Concomitant]
     Active Substance: HYDROXYZINE HYDROCHLORIDE
  22. SACCHAROMYCES CEREVISIAE [Concomitant]
     Active Substance: SACCHAROMYCES CEREVISIAE
  23. AZELASTINE HYDROCHLORIDE [Concomitant]
     Active Substance: AZELASTINE HYDROCHLORIDE
  24. LACTULOSE [Concomitant]
     Active Substance: LACTULOSE
  25. LEVOTHYROXINE SODIUM [Concomitant]
     Active Substance: LEVOTHYROXINE SODIUM
  26. FLUTICASONE PROPIONATE [Concomitant]
     Active Substance: FLUTICASONE PROPIONATE
  27. NARCAN [Concomitant]
     Active Substance: NALOXONE HYDROCHLORIDE
  28. ONDANSETRON HYDROCHLORIDE [Concomitant]
     Active Substance: ONDANSETRON HYDROCHLORIDE

REACTIONS (5)
  - Wheezing [Unknown]
  - Cough [Unknown]
  - Sleep disorder due to a general medical condition [Unknown]
  - Asthma [Unknown]
  - Therapeutic response shortened [Unknown]
